FAERS Safety Report 8357297 (Version 2)
Quarter: 2012Q4

REPORT INFORMATION
  Report Type: 
  Country: US (occurrence: US)
  Receive Date: 20120127
  Receipt Date: 20121029
  Transmission Date: 20130627
  Serious: No
  Sender: FDA-Public Use
  Company Number: US-MYLANLABS-2011S1023690

PATIENT
  Age: 57 Year
  Sex: Male
  Weight: 73.48 kg

DRUGS (3)
  1. CLONIDINE [Suspect]
     Indication: HYPERTENSION
     Dosage: Change Qweek
     Route: 062
     Dates: start: 2010, end: 2011
  2. ASA [Concomitant]
     Route: 048
  3. BENADRYL [Concomitant]
     Indication: ASTHMA
     Route: 048

REACTIONS (3)
  - Hypersensitivity [Recovered/Resolved]
  - Application site vesicles [Recovered/Resolved]
  - Application site scar [Not Recovered/Not Resolved]
